FAERS Safety Report 4909031-6 (Version None)
Quarter: 2006Q1

REPORT INFORMATION
  Report Type: 
  Country: None (occurrence: None)
  Receive Date: 20060208
  Receipt Date: 20060127
  Transmission Date: 20060701
  Serious: Yes (Other)
  Sender: FDA-Public Use
  Company Number: SUS1-2006-00097

PATIENT
  Age: 52 Year
  Sex: Female
  Weight: 61.2 kg

DRUGS (5)
  1. ADDERALL XR 30 [Suspect]
     Indication: ATTENTION DEFICIT/HYPERACTIVITY DISORDER
     Dosage: 30 MG, 1X/DAY; QD
     Dates: start: 20050301
  2. ACTONEL [Concomitant]
  3. CALCIUM (CALCIUM) [Concomitant]
  4. MAGNESIUM (MAGNESIUM) [Concomitant]
  5. CLARITIN [Concomitant]

REACTIONS (4)
  - BLINDNESS TRANSIENT [None]
  - PRESCRIBED OVERDOSE [None]
  - VITREOUS FLOATERS [None]
  - VITREOUS HAEMORRHAGE [None]
